FAERS Safety Report 10491839 (Version 1)
Quarter: 2014Q4

REPORT INFORMATION
  Report Type: Spontaneous
  Country: US (occurrence: US)
  Receive Date: 20141002
  Receipt Date: 20141002
  Transmission Date: 20150528
  Serious: No
  Sender: FDA-Public Use
  Company Number: US-GLAXOSMITHKLINE-A1060659A

PATIENT
  Age: 28 Year
  Sex: Female

DRUGS (2)
  1. ANTIBIOTIC [Concomitant]
     Active Substance: UNSPECIFIED INGREDIENT
  2. ADVAIR HFA [Suspect]
     Active Substance: FLUTICASONE PROPIONATE\SALMETEROL XINAFOATE
     Indication: ASTHMA
     Dosage: 1PUFF TWICE PER DAY
     Route: 055
     Dates: start: 2000

REACTIONS (7)
  - Mouth ulceration [Recovered/Resolved]
  - Mucosal inflammation [Recovered/Resolved]
  - Pharyngeal oedema [Recovered/Resolved]
  - Oral herpes [Recovered/Resolved]
  - Swollen tongue [Recovered/Resolved]
  - Oral mucosal exfoliation [Recovered/Resolved]
  - Malaise [Recovered/Resolved]

NARRATIVE: CASE EVENT DATE: 2000
